FAERS Safety Report 10312837 (Version 2)
Quarter: 2014Q3

REPORT INFORMATION
  Report Type: Spontaneous
  Country: RO (occurrence: RO)
  Receive Date: 20140718
  Receipt Date: 20140818
  Transmission Date: 20150326
  Serious: Yes (Other)
  Sender: FDA-Public Use
  Company Number: RO-ROCHE-1436713

PATIENT
  Age: 64 Year
  Sex: Male
  Weight: 94 kg

DRUGS (4)
  1. SYMPHORAL [Concomitant]
     Dosage: PREMEDICATION
     Route: 048
     Dates: start: 20140425, end: 20140714
  2. MABTHERA [Suspect]
     Active Substance: RITUXIMAB
     Indication: NON-HODGKIN^S LYMPHOMA
     Route: 042
     Dates: start: 20140425, end: 20140714
  3. PARACETAMOL [Concomitant]
     Active Substance: ACETAMINOPHEN
     Dosage: PREMEDICATION
     Route: 048
     Dates: start: 20140425, end: 20140714
  4. HYDROCORTISONE HEMISUCCINATE [Concomitant]
     Active Substance: HYDROCORTISONE HEMISUCCINATE
     Dosage: PREMEDICATION
     Route: 042
     Dates: start: 20140425, end: 20140714

REACTIONS (4)
  - Hyperhidrosis [Recovered/Resolved]
  - Cyanosis [Recovered/Resolved]
  - Chills [Recovered/Resolved]
  - Hypotension [Recovered/Resolved]

NARRATIVE: CASE EVENT DATE: 20140425
